FAERS Safety Report 14601863 (Version 1)
Quarter: 2018Q1

REPORT INFORMATION
  Report Type: Spontaneous
  Country: FR (occurrence: FR)
  Receive Date: 20180306
  Receipt Date: 20180306
  Transmission Date: 20180509
  Serious: Yes (Other)
  Sender: FDA-Public Use
  Company Number: FR-ROCHE-2080688

PATIENT
  Age: 45 Year
  Sex: Male
  Weight: 120 kg

DRUGS (8)
  1. METFORMIN [Concomitant]
     Active Substance: METFORMIN HYDROCHLORIDE
     Route: 065
  2. VALSARTAN. [Concomitant]
     Active Substance: VALSARTAN
     Route: 065
  3. HYDROCHLOROTHIAZIDE. [Concomitant]
     Active Substance: HYDROCHLOROTHIAZIDE
     Route: 065
  4. ESOMEPRAZOLE [Concomitant]
     Active Substance: ESOMEPRAZOLE
     Route: 065
  5. CELLCEPT [Suspect]
     Active Substance: MYCOPHENOLATE MOFETIL\MYCOPHENOLATE MOFETIL HYDROCHLORIDE
     Indication: CHORIORETINITIS
     Route: 048
     Dates: start: 20170906
  6. CLAIRYG [Suspect]
     Active Substance: HUMAN IMMUNOGLOBULIN G
     Indication: CHORIORETINOPATHY
     Dosage: 3 CURES : 30G/J PENDANT 3J
     Route: 042
     Dates: start: 20170906, end: 20171124
  7. AMLOR [Concomitant]
     Active Substance: AMLODIPINE BESYLATE
     Route: 065
  8. GLICLAZIDE [Concomitant]
     Active Substance: GLICLAZIDE
     Route: 065

REACTIONS (1)
  - Pustular psoriasis [Recovered/Resolved]

NARRATIVE: CASE EVENT DATE: 20171004
